FAERS Safety Report 18818460 (Version 1)
Quarter: 2021Q1

REPORT INFORMATION
  Report Type: Report from Study
  Country: CN (occurrence: CN)
  Receive Date: 20210201
  Receipt Date: 20210201
  Transmission Date: 20210419
  Serious: Yes (Other)
  Sender: FDA-Public Use
  Company Number: CN-ELI_LILLY_AND_COMPANY-CN201911005809

PATIENT
  Age: 55 Year
  Sex: Male

DRUGS (3)
  1. HUMULIN NOS [Suspect]
     Active Substance: INSULIN HUMAN
     Dosage: 8?10 U, EACH EVENING
     Route: 058
  2. HUMULIN NOS [Suspect]
     Active Substance: INSULIN HUMAN
     Indication: DIABETES MELLITUS
     Dosage: 14 U, EACH MORNING
     Route: 058
  3. HUMULIN NOS [Suspect]
     Active Substance: INSULIN HUMAN
     Dosage: 12 U, EACH MORNING
     Route: 058

REACTIONS (3)
  - Dizziness [Recovering/Resolving]
  - Blood creatinine increased [Recovering/Resolving]
  - Oedema [Recovering/Resolving]

NARRATIVE: CASE EVENT DATE: 2015
